FAERS Safety Report 8053818-0 (Version None)
Quarter: 2012Q1

REPORT INFORMATION
  Report Type: 
  Country: None (occurrence: None)
  Receive Date: 20120118
  Receipt Date: 20120109
  Transmission Date: 20120608
  Serious: Yes (Other)
  Sender: FDA-Public Use
  Company Number: US-ABBOTT-12P-163-0893042-00

PATIENT
  Sex: Female

DRUGS (10)
  1. AMLODIPINE BESYLATE [Concomitant]
     Indication: HYPERTENSION
     Route: 048
     Dates: start: 20111201
  2. METHOTREXATE [Concomitant]
     Indication: PRODUCT USED FOR UNKNOWN INDICATION
  3. HUMIRA [Suspect]
     Indication: RHEUMATOID ARTHRITIS
     Route: 058
     Dates: start: 20030701, end: 20050601
  4. LOSARTAN POTASSIUM [Concomitant]
     Indication: HYPERTENSION
  5. REMIDEX [Concomitant]
     Indication: HYPERTENSION
  6. HUMIRA [Suspect]
     Route: 058
     Dates: start: 20050601, end: 20090101
  7. HUMIRA [Suspect]
     Indication: RHEUMATOID ARTHRITIS
     Route: 058
  8. VERAPAMIL [Concomitant]
     Indication: PRODUCT USED FOR UNKNOWN INDICATION
  9. AMLODIPINE BESYLATE [Concomitant]
     Route: 048
  10. FOLIC ACID [Concomitant]
     Indication: PRODUCT USED FOR UNKNOWN INDICATION

REACTIONS (7)
  - NASAL SEPTUM DISORDER [None]
  - INCORRECT DOSE ADMINISTERED [None]
  - DYSPNOEA PAROXYSMAL NOCTURNAL [None]
  - INJECTION SITE HAEMORRHAGE [None]
  - DEVICE MALFUNCTION [None]
  - SNORING [None]
  - HYPERTENSION [None]
